FAERS Safety Report 9190578 (Version 1)
Quarter: 2013Q1

REPORT INFORMATION
  Report Type: Spontaneous
  Country: IN (occurrence: None)
  Receive Date: 20130322
  Receipt Date: 20130322
  Transmission Date: 20140127
  Serious: Yes (Other)
  Sender: FDA-Public Use
  Company Number: MC201300135

PATIENT
  Sex: 0

DRUGS (3)
  1. ANGIOMAX, ANGIOX (BIVALIRUDIN) INJECTION [Suspect]
     Indication: PERCUTANEOUS CORONARY INTERVENTION
     Dosage: UNK INFUSION, INTRAVENOUS
     Route: 042
     Dates: start: 20130202, end: 20130202
  2. ANGIOMAX, ANGIOX (BIVALIRUDIN) INJECTION [Suspect]
     Indication: ATHERECTOMY
     Dosage: UNK INFUSION, INTRAVENOUS
     Route: 042
     Dates: start: 20130202, end: 20130202
  3. HEPARIN (HEPARIN SODIUM) [Concomitant]

REACTIONS (2)
  - Coronary artery perforation [None]
  - Sepsis [None]
